FAERS Safety Report 9344905 (Version 2)
Quarter: 2013Q3

REPORT INFORMATION
  Report Type: Spontaneous
  Country: US (occurrence: US)
  Receive Date: 20130612
  Receipt Date: 20130701
  Transmission Date: 20140515
  Serious: No
  Sender: FDA-Public Use
  Company Number: US-TEVA-411936USA

PATIENT
  Sex: Female

DRUGS (2)
  1. PLAN B ONE-STEP [Suspect]
     Indication: POST COITAL CONTRACEPTION
     Dosage: 1.5 MILLIGRAM DAILY;
     Route: 048
     Dates: start: 20130428, end: 20130428
  2. IRON [Concomitant]
     Indication: MEDICAL DIET

REACTIONS (6)
  - Depressed mood [Recovered/Resolved]
  - Anxiety [Recovered/Resolved]
  - Asthenia [Recovered/Resolved]
  - Menstruation irregular [Recovered/Resolved]
  - Premenstrual syndrome [Recovered/Resolved]
  - Dysmenorrhoea [Recovered/Resolved]
